FAERS Safety Report 23011640 (Version 3)
Quarter: 2023Q4

REPORT INFORMATION
  Report Type: Spontaneous
  Country: US (occurrence: US)
  Receive Date: 20230929
  Receipt Date: 20231120
  Transmission Date: 20240110
  Serious: No
  Sender: FDA-Public Use
  Company Number: US-PFIZER INC-2019242102

PATIENT
  Age: 67 Year
  Sex: Female
  Weight: 47.63 kg

DRUGS (2)
  1. ESTRING [Suspect]
     Active Substance: ESTRADIOL
     Indication: Vulvovaginal dryness
     Dosage: 2 MG
  2. ESTRING [Suspect]
     Active Substance: ESTRADIOL
     Indication: Dyspareunia

REACTIONS (3)
  - COVID-19 [Unknown]
  - Product prescribing error [Unknown]
  - Intentional product misuse [Unknown]
